FAERS Safety Report 23771401 (Version 1)
Quarter: 2024Q2

REPORT INFORMATION
  Report Type: Spontaneous
  Country: US (occurrence: US)
  Receive Date: 20240423
  Receipt Date: 20240423
  Transmission Date: 20240716
  Serious: Yes (Other)
  Sender: FDA-Public Use
  Company Number: US-SANDOZ-SDZ2024US041409

PATIENT
  Age: 29 Year
  Sex: Male

DRUGS (4)
  1. STANOZOLOL [Suspect]
     Active Substance: STANOZOLOL
     Indication: Muscle hypertrophy
     Route: 065
  2. TESTOSTERONE [Suspect]
     Active Substance: TESTOSTERONE
     Indication: Muscle hypertrophy
     Route: 030
  3. METHYLPREDNISOLONE [Concomitant]
     Active Substance: METHYLPREDNISOLONE
     Indication: Product used for unknown indication
     Route: 065
  4. PREDNISONE [Concomitant]
     Active Substance: PREDNISONE
     Indication: Product used for unknown indication
     Route: 065

REACTIONS (2)
  - Drug abuse [Unknown]
  - Myocarditis [Unknown]
